FAERS Safety Report 18620768 (Version 1)
Quarter: 2020Q4

REPORT INFORMATION
  Report Type: Spontaneous
  Country: CN (occurrence: CN)
  Receive Date: 20201216
  Receipt Date: 20201216
  Transmission Date: 20210114
  Serious: Yes (Other)
  Sender: FDA-Public Use
  Company Number: CN-ROCHE-2732666

PATIENT
  Age: 48 Year
  Sex: Male
  Weight: 61 kg

DRUGS (2)
  1. TECENTRIQ [Suspect]
     Active Substance: ATEZOLIZUMAB
     Indication: HEPATIC CANCER METASTATIC
     Route: 065
     Dates: start: 20201029
  2. AVASTIN [Suspect]
     Active Substance: BEVACIZUMAB
     Indication: HEPATIC CANCER METASTATIC
     Route: 065
     Dates: start: 20201029

REACTIONS (4)
  - Abdominal injury [Unknown]
  - Liver injury [Unknown]
  - Hepatitis [Unknown]
  - Periphlebitis [Unknown]
